FAERS Safety Report 15719842 (Version 1)
Quarter: 2018Q4

REPORT INFORMATION
  Report Type: Spontaneous
  Country: IT (occurrence: IT)
  Receive Date: 20181213
  Receipt Date: 20181213
  Transmission Date: 20190205
  Serious: Yes (Other)
  Sender: FDA-Public Use
  Company Number: IT-ASTRAZENECA-2018SF60919

PATIENT
  Age: 56 Year
  Sex: Female

DRUGS (7)
  1. OLAPARIB. [Suspect]
     Active Substance: OLAPARIB
     Dosage: SIXTH CYCLE 200+200 MG DAILY
     Route: 048
     Dates: start: 20180831
  2. OLAPARIB. [Suspect]
     Active Substance: OLAPARIB
     Dosage: SECOND CYCLE 400+400 MG DAILY
     Route: 048
     Dates: start: 20180503
  3. OLAPARIB. [Suspect]
     Active Substance: OLAPARIB
     Dosage: THIRD CYCLE 200+200 MG DAILY
     Route: 048
     Dates: start: 20180608
  4. OLAPARIB. [Suspect]
     Active Substance: OLAPARIB
     Dosage: FOURTH CYCLE 200+200 MG DAILY
     Route: 048
     Dates: start: 20180606
  5. OLAPARIB. [Suspect]
     Active Substance: OLAPARIB
     Dosage: FIFTH CYCLE 200+200 MG DAILY
     Route: 048
     Dates: start: 20180803
  6. OLAPARIB. [Suspect]
     Active Substance: OLAPARIB
     Dosage: FIRST CYCLE 400+400 MG DAILY
     Route: 048
     Dates: start: 20180404
  7. OLAPARIB. [Suspect]
     Active Substance: OLAPARIB
     Dosage: POSTPONEMENT OLAPARIB 3??? CYCLE
     Route: 048
     Dates: start: 20180531

REACTIONS (3)
  - Disease progression [Unknown]
  - Thrombocytopenia [Unknown]
  - Anaemia [Unknown]
